FAERS Safety Report 7919753-0 (Version None)
Quarter: 2011Q4

REPORT INFORMATION
  Report Type: 
  Country: None (occurrence: None)
  Receive Date: 20111117
  Receipt Date: 20111109
  Transmission Date: 20120403
  Serious: Yes (Hospitalization)
  Sender: FDA-Public Use
  Company Number: FR-ASTELLAS-2011EU007944

PATIENT
  Sex: Female

DRUGS (5)
  1. ALLOPURINOL [Suspect]
     Dosage: 200 MG, UID/QD
     Route: 065
  2. PREVISCAN [Concomitant]
     Dosage: UNK
     Route: 065
  3. PROGRAF [Suspect]
     Dosage: 1.5 MG, BID
     Route: 065
  4. IRBESARTAN [Suspect]
     Dosage: 75 MG, BID
     Route: 065
     Dates: start: 19780101, end: 20111013
  5. SOTALOL HCL [Concomitant]
     Dosage: 160 DF, BID
     Route: 065

REACTIONS (1)
  - RHABDOMYOLYSIS [None]
